FAERS Safety Report 6420345-3 (Version None)
Quarter: 2009Q4

REPORT INFORMATION
  Report Type: 
  Country: None (occurrence: None)
  Receive Date: 20091021
  Receipt Date: 20090526
  Transmission Date: 20100525
  Serious: No
  Sender: FDA-Public Use
  Company Number: ALL1-2009-01461

PATIENT
  Age: 7 Year
  Sex: Male
  Weight: 24.9 kg

DRUGS (2)
  1. VYVANSE [Suspect]
     Indication: ATTENTION DEFICIT/HYPERACTIVITY DISORDER
     Dosage: 30 MG, 1X/DAY:QD, ORAL; 40 MG, 1X/DAY;QD, ORAL; 30 MG, 1X/DAY;QD, ORAL
     Route: 048
     Dates: start: 20080601, end: 20090429
  2. VYVANSE [Suspect]
     Indication: ATTENTION DEFICIT/HYPERACTIVITY DISORDER
     Dosage: 30 MG, 1X/DAY:QD, ORAL; 40 MG, 1X/DAY;QD, ORAL; 30 MG, 1X/DAY;QD, ORAL
     Route: 048
     Dates: start: 20090522

REACTIONS (2)
  - DRUG INEFFECTIVE [None]
  - NEGATIVISM [None]
